APPROVED DRUG PRODUCT: TOPIRAMATE
Active Ingredient: TOPIRAMATE
Strength: 25MG
Dosage Form/Route: CAPSULE;ORAL
Application: A218482 | Product #002 | TE Code: AB
Applicant: ALKEM LABORATORIES LTD
Approved: Jun 13, 2024 | RLD: No | RS: No | Type: RX